APPROVED DRUG PRODUCT: FOLIC ACID
Active Ingredient: FOLIC ACID
Strength: 1MG
Dosage Form/Route: TABLET;ORAL
Application: A211064 | Product #001 | TE Code: AA
Applicant: RISING PHARMA HOLDINGS INC
Approved: Mar 8, 2019 | RLD: No | RS: No | Type: RX